FAERS Safety Report 6701090-3 (Version None)
Quarter: 2010Q2

REPORT INFORMATION
  Report Type: 
  Country: None (occurrence: None)
  Receive Date: 20100428
  Receipt Date: 20100416
  Transmission Date: 20101027
  Serious: Yes (Hospitalization)
  Sender: FDA-Public Use
  Company Number: FR-GENENTECH-300937

PATIENT
  Sex: Female
  Weight: 58 kg

DRUGS (25)
  1. RITUXIMAB [Suspect]
     Indication: ACUTE LYMPHOCYTIC LEUKAEMIA
     Dosage: 600 MG, UNK
     Route: 042
     Dates: start: 20080919, end: 20080919
  2. RITUXIMAB [Suspect]
     Dosage: 607 MG, UNK
     Route: 042
     Dates: start: 20090115, end: 20090115
  3. RITUXIMAB [Suspect]
     Dosage: 607 MG, UNK
     Route: 042
     Dates: start: 20090121, end: 20090121
  4. CYTARABINE [Suspect]
     Indication: ACUTE LYMPHOCYTIC LEUKAEMIA
     Dosage: 3200 UNK, UNK
     Route: 042
     Dates: start: 20080919, end: 20080920
  5. ELSPAR [Suspect]
     Indication: ACUTE LYMPHOCYTIC LEUKAEMIA
     Dosage: 10000 UNK, UNK
     Route: 042
     Dates: start: 20080902, end: 20080901
  6. ELSPAR [Suspect]
     Dosage: 16000 UNK, UNK
     Route: 042
     Dates: start: 20080921, end: 20080921
  7. VINCRISTINE [Suspect]
     Indication: ACUTE LYMPHOCYTIC LEUKAEMIA
     Dosage: 2 MG, UNK
     Route: 042
     Dates: start: 20080828, end: 20080904
  8. DAUNORUBICIN HCL [Suspect]
     Indication: ACUTE LYMPHOCYTIC LEUKAEMIA
     Dosage: 50 MG, UNK
     Route: 042
     Dates: start: 20080828, end: 20080829
  9. ZELITREX [Concomitant]
     Indication: ANTIVIRAL PROPHYLAXIS
     Dosage: UNK
     Route: 048
     Dates: start: 20080820
  10. HYZAAR [Concomitant]
     Indication: HYPERTENSION
     Dosage: UNK
     Route: 048
  11. FLUCONAZOLE [Concomitant]
     Indication: ANTIFUNGAL PROPHYLAXIS
     Dosage: 400 UNK, UNK
     Route: 048
     Dates: start: 20080913
  12. BACTRIM DS [Concomitant]
     Indication: INFECTION PROPHYLAXIS
     Dosage: UNK
     Route: 048
     Dates: start: 20080916
  13. TAZOCILLINE [Concomitant]
     Indication: FUNGAL INFECTION
     Dosage: 4 G, TID
     Route: 042
     Dates: start: 20080906, end: 20080912
  14. TAZOCILLINE [Concomitant]
     Dosage: FREQUENCY: THREE
     Route: 042
     Dates: start: 20090207, end: 20090217
  15. CIPROFLOXACIN HCL [Concomitant]
     Indication: PARONYCHIA
     Dosage: UNK
     Route: 042
     Dates: start: 20080905, end: 20080912
  16. GRANOCYTE [Concomitant]
     Indication: PROPHYLAXIS
     Dosage: UNK
     Route: 042
     Dates: start: 20080831, end: 20080912
  17. GRANOCYTE [Concomitant]
     Dosage: UNK
     Route: 042
     Dates: start: 20090116, end: 20090214
  18. HEPARIN [Concomitant]
     Indication: THROMBOSIS PROPHYLAXIS
     Dosage: UNK
     Route: 042
     Dates: start: 20080808
  19. OGASTRO [Concomitant]
     Indication: GASTROOESOPHAGEAL REFLUX DISEASE
     Dosage: UNK
     Route: 048
     Dates: start: 20080805
  20. OGASTRO [Concomitant]
     Dosage: UNK
     Route: 048
     Dates: start: 20080820
  21. PERFALGAN [Concomitant]
     Indication: PAIN
     Dosage: UNK
     Route: 042
     Dates: start: 20090206, end: 20090218
  22. VANCOMYCIN HCL [Concomitant]
     Indication: PARONYCHIA
     Dosage: UNK
     Route: 042
     Dates: start: 20080901, end: 20080912
  23. VANCOMYCIN HCL [Concomitant]
     Dosage: UNK
     Route: 042
     Dates: start: 20090123, end: 20090217
  24. FUSAFUNGINE [Concomitant]
     Indication: ANTIFUNGAL PROPHYLAXIS
     Dosage: UNK
     Route: 042
     Dates: start: 20090106, end: 20090217
  25. CASPOFUNGIN [Concomitant]
     Indication: FUNGAL INFECTION
     Dosage: UNK
     Route: 042
     Dates: start: 20080907, end: 20080912

REACTIONS (4)
  - HEPATOTOXICITY [None]
  - MEDICAL DEVICE REMOVAL [None]
  - PARONYCHIA [None]
  - RASH MACULO-PAPULAR [None]
